FAERS Safety Report 20980846 (Version 1)
Quarter: 2022Q2

REPORT INFORMATION
  Report Type: Spontaneous
  Country: CA (occurrence: None)
  Receive Date: 20220620
  Receipt Date: 20220620
  Transmission Date: 20220721
  Serious: Yes (Other)
  Sender: FDA-Public Use
  Company Number: CA-ROCHE-3118824

PATIENT
  Sex: Male

DRUGS (12)
  1. RITUXIMAB [Suspect]
     Active Substance: RITUXIMAB
     Indication: Rheumatoid arthritis
     Route: 041
  2. ACETAMINOPHEN [Concomitant]
     Active Substance: ACETAMINOPHEN
     Route: 048
  3. QUETIAPINE [Concomitant]
     Active Substance: QUETIAPINE
  4. DIPHENHYDRAMINE HYDROCHLORIDE [Concomitant]
     Active Substance: DIPHENHYDRAMINE HYDROCHLORIDE
     Route: 048
  5. TRIAZOLAM [Concomitant]
     Active Substance: TRIAZOLAM
  6. SIMPONI [Concomitant]
     Active Substance: GOLIMUMAB
     Route: 058
  7. FOLIC ACID [Concomitant]
     Active Substance: FOLIC ACID
  8. CLOZARIL [Concomitant]
     Active Substance: CLOZAPINE
  9. VYVANSE [Concomitant]
     Active Substance: LISDEXAMFETAMINE DIMESYLATE
  10. METHYLPREDNISOLONE [Concomitant]
     Active Substance: METHYLPREDNISOLONE
     Route: 042
  11. PREDNISONE [Concomitant]
     Active Substance: PREDNISONE
  12. METHOTREXATE [Concomitant]
     Active Substance: METHOTREXATE
     Route: 058

REACTIONS (1)
  - Ear infection [Unknown]
